FAERS Safety Report 5492817-X (Version None)
Quarter: 2007Q4

REPORT INFORMATION
  Report Type: 
  Country: None (occurrence: None)
  Receive Date: 20071019
  Receipt Date: 20071003
  Transmission Date: 20080405
  Serious: Yes (Other)
  Sender: FDA-Public Use
  Company Number: DSA_30736_2007

PATIENT
  Age: 40 Year
  Sex: Female

DRUGS (3)
  1. ENALAPRIL MALEATE [Suspect]
     Indication: HYPERTENSION
     Dosage: 10 MG QD
     Dates: start: 20070201, end: 20070401
  2. LABETALOL HYDROCHLORIDE [Concomitant]
  3. METHYLDOPA [Concomitant]

REACTIONS (5)
  - ABORTION INDUCED [None]
  - DRUG EXPOSURE DURING PREGNANCY [None]
  - OLIGOHYDRAMNIOS [None]
  - PLACENTAL DISORDER [None]
  - PREGNANCY [None]
